FAERS Safety Report 6610877-7 (Version None)
Quarter: 2010Q1

REPORT INFORMATION
  Report Type: 
  Country: None (occurrence: None)
  Receive Date: 20100219
  Receipt Date: 20100212
  Transmission Date: 20100710
  Serious: Yes (Hospitalization)
  Sender: FDA-Public Use
  Company Number: DSA_42607_2010

PATIENT
  Age: 70 Year
  Sex: Male

DRUGS (3)
  1. VASOTEC [Suspect]
     Indication: HYPERTENSION
     Dosage: 1.25 MG QD ORAL
     Route: 048
  2. LANTUS [Concomitant]
  3. NOVOLIN R [Concomitant]

REACTIONS (1)
  - HYPOGLYCAEMIA [None]
